FAERS Safety Report 11171477 (Version 2)
Quarter: 2015Q3

REPORT INFORMATION
  Report Type: Spontaneous
  Country: US (occurrence: US)
  Receive Date: 20150608
  Receipt Date: 20150828
  Transmission Date: 20151125
  Serious: No
  Sender: FDA-Public Use
  Company Number: US-PFIZER INC-2015190123

PATIENT
  Age: 50 Year
  Sex: Male
  Weight: 181 kg

DRUGS (1)
  1. SOMAVERT [Suspect]
     Active Substance: PEGVISOMANT
     Indication: ACROMEGALY
     Dosage: 10 MG, 1X/DAY
     Dates: start: 201503, end: 20150524

REACTIONS (1)
  - Chromaturia [Recovered/Resolved]
